FAERS Safety Report 21714160 (Version 2)
Quarter: 2022Q4

REPORT INFORMATION
  Report Type: Spontaneous
  Country: US (occurrence: US)
  Receive Date: 20221212
  Receipt Date: 20221216
  Transmission Date: 20230112
  Serious: Yes (Death, Life-Threatening, Other)
  Sender: FDA-Public Use
  Company Number: US-002147023-NVSC2022US287291

PATIENT
  Age: 75 Year
  Sex: Male

DRUGS (1)
  1. ZOMETA [Suspect]
     Active Substance: ZOLEDRONIC ACID
     Indication: Product used for unknown indication
     Dosage: UNK
     Route: 065
     Dates: start: 20221121

REACTIONS (13)
  - Death [Fatal]
  - Feeling abnormal [Unknown]
  - Lung neoplasm malignant [Unknown]
  - Metastases to liver [Unknown]
  - Metastases to spine [Unknown]
  - Pleural effusion [Unknown]
  - Hypopnoea [Unknown]
  - Oxygen saturation decreased [Unknown]
  - Respiratory rate decreased [Unknown]
  - Infection [Unknown]
  - Inflammation [Unknown]
  - Pyrexia [Unknown]
  - Fatigue [Unknown]

NARRATIVE: CASE EVENT DATE: 20221213
